FAERS Safety Report 5739694-7 (Version None)
Quarter: 2008Q2

REPORT INFORMATION
  Report Type: 
  Country: None (occurrence: None)
  Receive Date: 20080513
  Receipt Date: 20080428
  Transmission Date: 20081010
  Serious: Yes (Hospitalization)
  Sender: FDA-Public Use
  Company Number: S08-ESP-01708-01

PATIENT
  Age: 48 Year
  Sex: Female

DRUGS (5)
  1. ESCITALOPRAM [Suspect]
     Indication: DEPRESSION
     Dosage: 10 MG QD PO
     Route: 048
     Dates: start: 20070825, end: 20070828
  2. SEROQUEL [Suspect]
     Indication: DEPRESSION
     Dosage: 100 MG QD PO
     Route: 048
     Dates: start: 20070825, end: 20070829
  3. TOPAMAX [Suspect]
     Indication: DEPRESSION
     Dosage: 100 MG QD PO
     Route: 048
     Dates: start: 20070825, end: 20070828
  4. DORKEN [Suspect]
     Indication: DEPRESSION
     Dosage: 10 MG QD PO
     Route: 048
     Dates: start: 20070815, end: 20070825
  5. LEXATIN (BROMAZEPAM) [Suspect]
     Indication: DEPRESSION
     Dosage: 1.5 MG QD PO
     Route: 048
     Dates: start: 20070825, end: 20070829

REACTIONS (1)
  - HEPATITIS CHOLESTATIC [None]
